FAERS Safety Report 6519842-1 (Version None)
Quarter: 2009Q4

REPORT INFORMATION
  Report Type: 
  Country: None (occurrence: None)
  Receive Date: 20091228
  Receipt Date: 20091228
  Transmission Date: 20100525
  Serious: Yes (Other)
  Sender: FDA-Public Use
  Company Number: None

PATIENT

DRUGS (1)
  1. PSUDOEPHEDRINE TABLETS 30MG LNK INTERNATIONAL, INC. [Suspect]
     Indication: NASAL CONGESTION
     Dates: start: 20091212, end: 20091226

REACTIONS (3)
  - DRUG INEFFECTIVE [None]
  - PRODUCT MEASURED POTENCY ISSUE [None]
  - PRODUCT SUBSTITUTION ISSUE [None]
